FAERS Safety Report 9128268 (Version 1)
Quarter: 2013Q1

REPORT INFORMATION
  Report Type: Report from Study
  Country: US (occurrence: US)
  Receive Date: 20130125
  Receipt Date: 20130125
  Transmission Date: 20140127
  Serious: Yes (Hospitalization)
  Sender: FDA-Public Use
  Company Number: US-ABBOTT-13P-163-1037303-00

PATIENT
  Sex: Male

DRUGS (7)
  1. HUMIRA [Suspect]
     Indication: PSORIASIS
     Route: 058
     Dates: start: 2008, end: 201212
  2. DIABETES MEDICINE [Concomitant]
     Indication: DIABETES MELLITUS
  3. DIABETES MEDICINE [Concomitant]
  4. INSULIN [Concomitant]
     Indication: DIABETES MELLITUS
  5. INSULIN [Concomitant]
  6. HEART MEDICATIONS [Concomitant]
     Indication: PRODUCT USED FOR UNKNOWN INDICATION
  7. SYNVISC [Concomitant]
     Indication: ARTHROPATHY

REACTIONS (6)
  - Dizziness [Unknown]
  - Disorientation [Unknown]
  - Dysstasia [Unknown]
  - Central nervous system lesion [Unknown]
  - Nervous system disorder [Not Recovered/Not Resolved]
  - Cerebrovascular accident [Recovering/Resolving]
